FAERS Safety Report 9414260 (Version 3)
Quarter: 2013Q4

REPORT INFORMATION
  Report Type: Spontaneous
  Country: DE (occurrence: None)
  Receive Date: 20130717
  Receipt Date: 20131011
  Transmission Date: 20140711
  Serious: Yes (Hospitalization)
  Sender: FDA-Public Use
  Company Number: AUR-APL-2013-05925

PATIENT
  Age: 68 Year
  Sex: Female

DRUGS (4)
  1. AMLODIPINE [Suspect]
     Indication: HYPERTENSION
     Dates: start: 20080423, end: 20121113
  2. BISOPROLOL [Suspect]
     Indication: HYPERTENSION
     Dates: start: 20080423, end: 20130222
  3. METFORMIN HYDROCHLORIDE [Suspect]
     Indication: DIABETES MELLITUS
     Dosage: 2000 MG/ 100 MG DAILY, UNKNOWN
     Dates: start: 20121002
  4. L-THYROXIN (LEVOTHYROXINE SODIUM) [Concomitant]

REACTIONS (14)
  - Angina unstable [None]
  - Atrial fibrillation [None]
  - Cardiac failure [None]
  - Atrial fibrillation [None]
  - QRS axis abnormal [None]
  - Electrocardiogram T wave inversion [None]
  - Heart rate decreased [None]
  - Ventricular extrasystoles [None]
  - Mitral valve incompetence [None]
  - Tricuspid valve incompetence [None]
  - Palpitations [None]
  - Dyspnoea [None]
  - Chest discomfort [None]
  - Chest pain [None]
